FAERS Safety Report 13008762 (Version 1)
Quarter: 2016Q4

REPORT INFORMATION
  Report Type: Report from Study
  Country: FR (occurrence: FR)
  Receive Date: 20161208
  Receipt Date: 20161208
  Transmission Date: 20170207
  Serious: Yes (Other)
  Sender: FDA-Public Use
  Company Number: FR-ASTELLAS-2016US008294

PATIENT
  Age: 64 Year
  Sex: Male

DRUGS (6)
  1. CERTICAN [Concomitant]
     Active Substance: EVEROLIMUS
     Indication: LIVER TRANSPLANT
     Route: 065
  2. TACROLIMUS. [Suspect]
     Active Substance: TACROLIMUS
     Dosage: 4 MG, ONCE DAILY 1 HOUR BEFORE A MEAL.
     Route: 048
     Dates: start: 20150617, end: 20150726
  3. TACROLIMUS. [Suspect]
     Active Substance: TACROLIMUS
     Indication: LIVER TRANSPLANT
     Route: 065
  4. INSULIN [Concomitant]
     Active Substance: INSULIN NOS
     Indication: DIABETES MELLITUS
     Dosage: UNK, UNKNOWN FREQ.
     Route: 065
  5. TACROLIMUS. [Suspect]
     Active Substance: TACROLIMUS
     Indication: LIVER TRANSPLANT
     Dosage: 5 MG, ONCE DAILY 1 HOUR BEFORE A MEAL
     Route: 048
     Dates: start: 20150605
  6. CELLCEPT [Concomitant]
     Active Substance: MYCOPHENOLATE MOFETIL\MYCOPHENOLATE MOFETIL HYDROCHLORIDE
     Indication: LIVER TRANSPLANT
     Route: 065

REACTIONS (10)
  - Tremor [Recovered/Resolved]
  - Haematoma [Recovered/Resolved]
  - Instillation site haemorrhage [Recovered/Resolved]
  - Biloma [Recovered/Resolved]
  - Leukocytosis [Recovered/Resolved]
  - Cholangitis [Recovered/Resolved]
  - Hypertension [Recovered/Resolved]
  - Diabetes mellitus [Recovered/Resolved]
  - Renal failure [Not Recovered/Not Resolved]
  - Hepatic artery thrombosis [Not Recovered/Not Resolved]

NARRATIVE: CASE EVENT DATE: 20150607
